FAERS Safety Report 7190750-9 (Version None)
Quarter: 2010Q4

REPORT INFORMATION
  Report Type: 
  Country: None (occurrence: None)
  Receive Date: 20101221
  Receipt Date: 20101221
  Transmission Date: 20110411
  Serious: No
  Sender: FDA-Public Use
  Company Number: None

PATIENT
  Age: 17 Year
  Sex: Female
  Weight: 65.7716 kg

DRUGS (1)
  1. SEASONALE [Suspect]
     Indication: CONTRACEPTION
     Dosage: 1 TAB QD PO
     Route: 048
     Dates: start: 20050701, end: 20060116

REACTIONS (2)
  - CONSTIPATION [None]
  - ILEUS PARALYTIC [None]
